FAERS Safety Report 5516901-7 (Version None)
Quarter: 2007Q4

REPORT INFORMATION
  Report Type: 
  Country: None (occurrence: None)
  Receive Date: 20071109
  Receipt Date: 20071029
  Transmission Date: 20080405
  Serious: Yes (Life-Threatening, Hospitalization)
  Sender: FDA-Public Use
  Company Number: 2005P1000509

PATIENT
  Age: 70 Year
  Sex: Male
  Weight: 115 kg

DRUGS (11)
  1. RETEPLASE (RETEPLASE) [Suspect]
     Indication: ACUTE MYOCARDIAL INFARCTION
     Dosage: 5 IU; X1; IV
     Route: 042
     Dates: start: 20050219, end: 20050219
  2. RETEPLASE (RETEPLASE) [Suspect]
     Indication: ACUTE MYOCARDIAL INFARCTION
     Dosage: 5 IU; X1; IV
     Route: 042
     Dates: start: 20050219, end: 20050219
  3. ABCIXIMAB (ABCIXIMAB) [Suspect]
     Indication: ACUTE MYOCARDIAL INFARCTION
     Dosage: 14.4 ML; BID; IV; 4.0 ML; QH; IV
     Route: 042
     Dates: start: 20050219, end: 20050219
  4. ABCIXIMAB (ABCIXIMAB) [Suspect]
     Indication: ACUTE MYOCARDIAL INFARCTION
     Dosage: 14.4 ML; BID; IV; 4.0 ML; QH; IV
     Route: 042
     Dates: start: 20050219, end: 20050219
  5. ASPIRIN [Concomitant]
  6. ACE INHIBITOR NOS [Concomitant]
  7. CHOLESTEROL-  AND [Concomitant]
  8. TRIGLYCERIDE REDUCERS [Concomitant]
  9. DIGITALIS TAB [Concomitant]
  10. CLOPIDOGREL [Concomitant]
  11. ANTIARRHYTHMICS, CLASS I AND III [Concomitant]

REACTIONS (9)
  - ANGINA UNSTABLE [None]
  - ATRIAL FIBRILLATION [None]
  - ATRIOVENTRICULAR BLOCK COMPLETE [None]
  - CARDIAC ARREST [None]
  - CARDIAC FAILURE [None]
  - CORONARY ARTERY DISEASE [None]
  - CORONARY ARTERY OCCLUSION [None]
  - PULMONARY OEDEMA [None]
  - VENTRICULAR FIBRILLATION [None]
